FAERS Safety Report 11591312 (Version 2)
Quarter: 2016Q1

REPORT INFORMATION
  Report Type: Report from Study
  Country: US (occurrence: US)
  Receive Date: 20151004
  Receipt Date: 20160115
  Transmission Date: 20160525
  Serious: Yes (Other)
  Sender: FDA-Public Use
  Company Number: US-AMGEN-USASL2015101551

PATIENT
  Age: 63 Year
  Sex: Male

DRUGS (1)
  1. ENBREL [Suspect]
     Active Substance: ETANERCEPT
     Indication: PSORIASIS
     Dosage: 50 MG, 2 TIMES/WK
     Route: 065

REACTIONS (5)
  - Drug dose omission [Unknown]
  - Psoriasis [Unknown]
  - Carotid artery occlusion [Unknown]
  - Cataract operation [Unknown]
  - Headache [Unknown]

NARRATIVE: CASE EVENT DATE: 2015
